FAERS Safety Report 5421750-4 (Version None)
Quarter: 2007Q3

REPORT INFORMATION
  Report Type: 
  Country: None (occurrence: None)
  Receive Date: 20070821
  Receipt Date: 20070813
  Transmission Date: 20080115
  Serious: Yes (Hospitalization, Other)
  Sender: FDA-Public Use
  Company Number: US-PFIZER INC-2007066947

PATIENT
  Sex: Female
  Weight: 64 kg

DRUGS (2)
  1. CELEBREX [Suspect]
     Indication: OSTEOPOROSIS
  2. CELEBREX [Suspect]
     Indication: ARTHRITIS

REACTIONS (2)
  - CARDIAC DISORDER [None]
  - CAROTID ARTERY OCCLUSION [None]
